FAERS Safety Report 15497894 (Version 3)
Quarter: 2019Q1

REPORT INFORMATION
  Report Type: Spontaneous
  Country: US (occurrence: US)
  Receive Date: 20181015
  Receipt Date: 20190320
  Transmission Date: 20190417
  Serious: Yes (Hospitalization)
  Sender: FDA-Public Use
  Company Number: US-PFIZER INC-2018410340

PATIENT
  Age: 28 Year
  Sex: Male
  Weight: 165.5 kg

DRUGS (5)
  1. SILDENAFIL. [Concomitant]
     Active Substance: SILDENAFIL
     Dosage: 50 MG, AS NEEDED
  2. GENOTROPIN [Suspect]
     Active Substance: SOMATROPIN
     Indication: GROWTH HORMONE DEFICIENCY
     Dosage: 1.2 MG, ONCE DAILY
     Dates: start: 201805
  3. TESTOSTERONE ENANTHATE. [Concomitant]
     Active Substance: TESTOSTERONE ENANTHATE
     Dosage: 225 MG, WEEKLY
  4. SYNTHROID [Concomitant]
     Active Substance: LEVOTHYROXINE SODIUM
     Dosage: 125 MG, DAILY
  5. ANASTROZOLE. [Concomitant]
     Active Substance: ANASTROZOLE
     Dosage: 0.5 MG, 2X/WEEK

REACTIONS (3)
  - Product dose omission [Recovered/Resolved]
  - Wrong technique in device usage process [Recovered/Resolved]
  - Insulin-like growth factor decreased [Unknown]

NARRATIVE: CASE EVENT DATE: 2018
